FAERS Safety Report 6768697-9 (Version None)
Quarter: 2010Q2

REPORT INFORMATION
  Report Type: 
  Country: None (occurrence: None)
  Receive Date: 20100614
  Receipt Date: 20100531
  Transmission Date: 20101027
  Serious: Yes (Other)
  Sender: FDA-Public Use
  Company Number: FR-ELI_LILLY_AND_COMPANY-FR201006001682

PATIENT
  Age: 84 Year
  Sex: Male

DRUGS (2)
  1. GEMCITABINE HYDROCHLORIDE [Suspect]
     Indication: METASTASES TO PERITONEUM
     Dosage: 2020 MG, UNK
     Dates: start: 20090101
  2. GEMCITABINE HYDROCHLORIDE [Suspect]
     Dosage: 2020 MG, UNK

REACTIONS (2)
  - ASCITES [None]
  - PERIPHERAL ISCHAEMIA [None]
